FAERS Safety Report 4552444-5 (Version None)
Quarter: 2005Q1

REPORT INFORMATION
  Report Type: 
  Country: None (occurrence: None)
  Receive Date: 20050111
  Receipt Date: 20050111
  Transmission Date: 20050727
  Serious: Yes (Other)
  Sender: FDA-Public Use
  Company Number: None

PATIENT
  Age: 19 Year
  Sex: Male
  Weight: 62 kg

DRUGS (2)
  1. LEXAPRO [Suspect]
     Indication: DEPRESSION
     Dosage: 10MG AM 047  11/7-11/24 ; 20MG AM 047 11/25-12/30
     Dates: start: 20041107
  2. LEXAPRO [Suspect]
     Indication: DEPRESSION
     Dosage: 10MG AM 047  11/7-11/24 ; 20MG AM 047 11/25-12/30
     Dates: start: 20041230

REACTIONS (3)
  - DRUG INEFFECTIVE [None]
  - INTENTIONAL SELF-INJURY [None]
  - SKIN LACERATION [None]
